FAERS Safety Report 11290012 (Version 1)
Quarter: 2015Q3

REPORT INFORMATION
  Report Type: Spontaneous
  Country: CN (occurrence: CN)
  Receive Date: 20150721
  Receipt Date: 20150721
  Transmission Date: 20151125
  Serious: Yes (Life-Threatening, Other)
  Sender: FDA-Public Use
  Company Number: PHHY2015CN087204

PATIENT
  Age: 79 Year
  Sex: Male
  Weight: 63 kg

DRUGS (2)
  1. DIOVAN [Suspect]
     Active Substance: VALSARTAN
     Indication: PROTEINURIA
     Dosage: 80 MG, QD
     Route: 048
     Dates: start: 20141213, end: 20141216
  2. CEFOTIAM [Concomitant]
     Active Substance: CEFOTIAM
     Indication: INFECTION
     Dosage: 2 G, QD
     Route: 041
     Dates: start: 20141210, end: 20141216

REACTIONS (5)
  - Oliguria [Recovering/Resolving]
  - Oedema [Recovering/Resolving]
  - Cardiac failure [Recovering/Resolving]
  - Cough [Recovering/Resolving]
  - Dyspnoea [Recovering/Resolving]

NARRATIVE: CASE EVENT DATE: 20141216
